FAERS Safety Report 4919270-6 (Version None)
Quarter: 2006Q1

REPORT INFORMATION
  Report Type: 
  Country: None (occurrence: None)
  Receive Date: 20060215
  Receipt Date: 20060208
  Transmission Date: 20060701
  Serious: Yes (Death)
  Sender: FDA-Public Use
  Company Number: 06-0019PO

PATIENT
  Age: 38 Year
  Sex: Female
  Weight: 43 kg

DRUGS (2)
  1. PONTAL (MEFENAMIC ACID) [Suspect]
     Dates: start: 20030801, end: 20030801
  2. DICLOFENAC SODIUM [Suspect]
     Dates: start: 20030801

REACTIONS (2)
  - PETECHIAE [None]
  - PURPURA [None]
